FAERS Safety Report 23311381 (Version 1)
Quarter: 2023Q4

REPORT INFORMATION
  Report Type: Spontaneous
  Country: CN (occurrence: CN)
  Receive Date: 20231219
  Receipt Date: 20231219
  Transmission Date: 20240110
  Serious: Yes (Hospitalization, Other)
  Sender: FDA-Public Use
  Company Number: CN-Merck Healthcare KGaA-2023494249

PATIENT
  Age: 37 Year
  Sex: Female
  Weight: 54 kg

DRUGS (9)
  1. LUVERIS [Suspect]
     Active Substance: LUTROPIN ALFA
     Indication: Superovulation
     Route: 058
     Dates: start: 20231110, end: 20231110
  2. LUVERIS [Suspect]
     Active Substance: LUTROPIN ALFA
     Route: 058
     Dates: start: 20231112, end: 20231112
  3. GONAL-F [Suspect]
     Active Substance: FOLLITROPIN
     Indication: Superovulation
     Route: 058
     Dates: start: 20231110, end: 20231110
  4. FOLLITROPIN BETA [Suspect]
     Active Substance: FOLLITROPIN BETA
     Indication: Superovulation
     Route: 058
     Dates: start: 20231102, end: 20231109
  5. UROFOLLITROPIN [Suspect]
     Active Substance: UROFOLLITROPIN
     Indication: Superovulation
     Route: 030
     Dates: start: 20231111, end: 20231111
  6. CHORIONIC GONADOTROPHIN [Suspect]
     Active Substance: CHORIOGONADOTROPIN ALFA
     Indication: Superovulation
     Route: 030
     Dates: start: 20231112, end: 20231112
  7. SODIUM CHLORIDE [Concomitant]
     Active Substance: SODIUM CHLORIDE
     Indication: Vehicle solution use
     Route: 030
     Dates: start: 20231111, end: 20231111
  8. SODIUM CHLORIDE [Concomitant]
     Active Substance: SODIUM CHLORIDE
     Route: 030
     Dates: start: 20231112, end: 20231112
  9. STERILE WATER [Concomitant]
     Active Substance: WATER
     Indication: Vehicle solution use
     Route: 058
     Dates: start: 20231110, end: 20231110

REACTIONS (4)
  - Ovarian hyperstimulation syndrome [Recovering/Resolving]
  - Abdominal distension [Recovering/Resolving]
  - Dyspnoea [Recovering/Resolving]
  - Abdominal pain [Recovering/Resolving]

NARRATIVE: CASE EVENT DATE: 20231127
